FAERS Safety Report 8758265 (Version 2)
Quarter: 2012Q4

REPORT INFORMATION
  Report Type: 
  Country: US (occurrence: US)
  Receive Date: 20120829
  Receipt Date: 20121010
  Transmission Date: 20130627
  Serious: Yes (Life-Threatening, Hospitalization)
  Sender: FDA-Public Use
  Company Number: US-ASTELLAS-2012US007301

PATIENT
  Age: 73 Year
  Sex: Female

DRUGS (5)
  1. LEXISCAN [Suspect]
     Indication: SCAN MYOCARDIAL PERFUSION
     Dosage: 0.4 mg, Total Dose
     Route: 042
     Dates: start: 20120822, end: 20120822
  2. LOPRESSOR [Concomitant]
     Indication: HYPERTENSION
     Dosage: 10 mg, Unknown/D
     Route: 042
  3. ATENOLOL [Concomitant]
     Indication: HYPERTENSION
     Dosage: UNK
     Route: 065
  4. PROCARDIA                          /00340701/ [Concomitant]
     Indication: HYPERTENSION
     Dosage: UNK
     Route: 065
     Dates: start: 201208
  5. HYDROCHLOROTHIAZIDE [Concomitant]
     Indication: HYPERTENSION
     Dosage: UNK
     Route: 065
     Dates: start: 201208

REACTIONS (7)
  - Unresponsive to stimuli [Recovered/Resolved]
  - Sinus arrest [Recovered/Resolved]
  - Anaphylactic shock [Unknown]
  - Bradycardia [Recovered/Resolved]
  - Dyspnoea [Unknown]
  - Nausea [Unknown]
  - Dizziness [Unknown]
